FAERS Safety Report 8992420 (Version 1)
Quarter: 2012Q4

REPORT INFORMATION
  Report Type: Report from Study
  Country: DE (occurrence: SE)
  Receive Date: 20121231
  Receipt Date: 20121231
  Transmission Date: 20130627
  Serious: Yes (Hospitalization)
  Sender: FDA-Public Use
  Company Number: SE-BRISTOL-MYERS SQUIBB COMPANY-17247347

PATIENT
  Age: 61 Year
  Sex: Male

DRUGS (3)
  1. CETUXIMAB [Suspect]
     Indication: HEAD AND NECK CANCER METASTATIC
  2. CISPLATIN [Suspect]
     Indication: HEAD AND NECK CANCER METASTATIC
  3. 5-FLUOROURACIL [Suspect]
     Indication: HEAD AND NECK CANCER METASTATIC

REACTIONS (1)
  - Syncope [Recovered/Resolved]
